FAERS Safety Report 4485079-3 (Version None)
Quarter: 2004Q3

REPORT INFORMATION
  Report Type: 
  Country: None (occurrence: None)
  Receive Date: 20040921
  Receipt Date: 20040525
  Transmission Date: 20050211
  Serious: Yes (Hospitalization)
  Sender: FDA-Public Use
  Company Number: 163-20785-04050590

PATIENT
  Age: 58 Year
  Sex: Male

DRUGS (3)
  1. THALOMID [Suspect]
     Indication: MULTIPLE MYELOMA
     Dosage: 50 MG, QOD, PER ORAL; SEE IMAGE
     Route: 048
     Dates: start: 20030730, end: 20040519
  2. THALOMID [Suspect]
     Indication: MULTIPLE MYELOMA
     Dosage: 50 MG, QOD, PER ORAL; SEE IMAGE
     Route: 048
     Dates: start: 19990709
  3. AREDIA [Suspect]
     Indication: MULTIPLE MYELOMA
     Dosage: 90 MG, Q MONTH, INTRAVENOUS
     Route: 042

REACTIONS (1)
  - ACUTE MYELOID LEUKAEMIA [None]
